FAERS Safety Report 9008198 (Version 2)
Quarter: 2013Q2

REPORT INFORMATION
  Report Type: Spontaneous
  Country: BE (occurrence: BE)
  Receive Date: 20130111
  Receipt Date: 20130402
  Transmission Date: 20140414
  Serious: Yes (Hospitalization)
  Sender: FDA-Public Use
  Company Number: PHHY2013BE001555

PATIENT
  Age: 43 Year
  Sex: Female

DRUGS (4)
  1. TASIGNA [Suspect]
     Indication: CHRONIC MYELOID LEUKAEMIA
     Dosage: 300 MG, BID
     Route: 048
     Dates: start: 20120808, end: 20120925
  2. ELTHYRONE [Concomitant]
     Dosage: 150 UG, QD
     Route: 048
  3. TRAZOLAN [Concomitant]
  4. LYSANXIA [Concomitant]

REACTIONS (7)
  - Pancytopenia [Recovered/Resolved]
  - Leukopenia [Recovered/Resolved]
  - Thrombocytopenia [Recovered/Resolved]
  - Febrile neutropenia [Recovering/Resolving]
  - Metrorrhagia [Unknown]
  - Menorrhagia [Unknown]
  - Oral infection [Unknown]
